FAERS Safety Report 7593753-5 (Version None)
Quarter: 2011Q3

REPORT INFORMATION
  Report Type: 
  Country: None (occurrence: None)
  Receive Date: 20110706
  Receipt Date: 20110624
  Transmission Date: 20111222
  Serious: Yes (Hospitalization)
  Sender: FDA-Public Use
  Company Number: PHHY2011US56321

PATIENT
  Sex: Female
  Weight: 75 kg

DRUGS (1)
  1. EXJADE [Suspect]
     Indication: ANAEMIA
     Dosage: 1000 MG, QOD
     Route: 048
     Dates: start: 20110428

REACTIONS (1)
  - CHEST PAIN [None]
